FAERS Safety Report 7207697-1 (Version None)
Quarter: 2011Q1

REPORT INFORMATION
  Report Type: 
  Country: None (occurrence: None)
  Receive Date: 20110103
  Receipt Date: 20101230
  Transmission Date: 20110831
  Serious: Yes (Other)
  Sender: FDA-Public Use
  Company Number: BR-PFIZER INC-2010181773

PATIENT
  Sex: Male

DRUGS (2)
  1. XALATAN [Suspect]
     Indication: GLAUCOMA
     Dosage: 3 UG, 1X/DAY (1 DROP EACH EYE)
     Route: 047
     Dates: start: 20080101
  2. TIMOLOL MALEATE [Concomitant]
     Dosage: UNK

REACTIONS (4)
  - LIP SWELLING [None]
  - SWELLING FACE [None]
  - SWELLING [None]
  - EYE SWELLING [None]
